FAERS Safety Report 8366851-6 (Version None)
Quarter: 2012Q2

REPORT INFORMATION
  Report Type: 
  Country: None (occurrence: None)
  Receive Date: 20120517
  Receipt Date: 20120509
  Transmission Date: 20120825
  Serious: Yes (Hospitalization)
  Sender: FDA-Public Use
  Company Number: ES-ROCHE-1030776

PATIENT
  Age: 42 Year
  Sex: Male

DRUGS (1)
  1. ORLISTAT [Suspect]
     Indication: OBESITY

REACTIONS (2)
  - AUTOIMMUNE HEPATITIS [None]
  - DRUG-INDUCED LIVER INJURY [None]
